FAERS Safety Report 10702662 (Version 1)
Quarter: 2015Q1

REPORT INFORMATION
  Report Type: Spontaneous
  Country: US (occurrence: US)
  Receive Date: 20150109
  Receipt Date: 20150109
  Transmission Date: 20150721
  Serious: No
  Sender: FDA-Public Use
  Company Number: US-GLAXOSMITHKLINE-US2014032179

PATIENT
  Sex: Female

DRUGS (3)
  1. EQUATE NICOTINE LOZENGES [Concomitant]
  2. EQUATE NICOTINE [Suspect]
     Active Substance: NICOTINE
     Indication: SMOKING CESSATION THERAPY
     Dosage: 21 MG, UNK
     Route: 062
     Dates: start: 20141103, end: 20141206
  3. EQUATE NICOTINE [Concomitant]
     Active Substance: NICOTINE

REACTIONS (1)
  - Drug ineffective [Unknown]
